FAERS Safety Report 7057110-2 (Version None)
Quarter: 2010Q4

REPORT INFORMATION
  Report Type: 
  Country: None (occurrence: None)
  Receive Date: 20101022
  Receipt Date: 20101015
  Transmission Date: 20110411
  Serious: Yes (Death, Hospitalization, Other)
  Sender: FDA-Public Use
  Company Number: US-CELGENEUS-163-C5013-05080320

PATIENT
  Age: 73 Year
  Sex: Male
  Weight: 72.4 kg

DRUGS (12)
  1. CC-5013 [Suspect]
     Route: 048
     Dates: start: 20050716, end: 20050805
  2. DEXAMETHASONE [Suspect]
     Route: 048
     Dates: start: 20050716, end: 20050804
  3. PREDNISONE [Concomitant]
     Indication: ADRENAL INSUFFICIENCY
     Route: 048
  4. OXYCONTIN [Concomitant]
     Indication: PAIN
     Route: 048
  5. OXYCODONE HCL [Concomitant]
     Indication: PAIN
     Dosage: 5-10
     Route: 065
  6. CELEXA [Concomitant]
     Indication: DEPRESSION
     Route: 048
  7. OS-CAL [Concomitant]
     Indication: PRODUCT USED FOR UNKNOWN INDICATION
     Route: 048
  8. COLACE [Concomitant]
     Indication: PRODUCT USED FOR UNKNOWN INDICATION
     Route: 048
  9. MACROBID [Concomitant]
     Indication: PRODUCT USED FOR UNKNOWN INDICATION
     Route: 048
  10. MIRALAX [Concomitant]
     Indication: PRODUCT USED FOR UNKNOWN INDICATION
     Route: 048
  11. SENOKOT [Concomitant]
     Indication: PRODUCT USED FOR UNKNOWN INDICATION
     Route: 048
  12. SODIUM PHOSPHATES [Concomitant]
     Indication: CONSTIPATION
     Route: 054

REACTIONS (5)
  - ACUTE RESPIRATORY FAILURE [None]
  - DEPRESSION [None]
  - FATIGUE [None]
  - HYPONATRAEMIA [None]
  - MUSCULAR WEAKNESS [None]
